FAERS Safety Report 8261467-4 (Version None)
Quarter: 2012Q2

REPORT INFORMATION
  Report Type: 
  Country: None (occurrence: None)
  Receive Date: 20120405
  Receipt Date: 20120329
  Transmission Date: 20120825
  Serious: Yes (Hospitalization)
  Sender: FDA-Public Use
  Company Number: US-BAYER-2012-031612

PATIENT
  Age: 21 Year
  Sex: Female
  Weight: 61 kg

DRUGS (2)
  1. NAPROXEN [Concomitant]
     Dosage: 500 MG, UNK
     Route: 048
  2. YAZ [Suspect]
     Indication: MENORRHAGIA

REACTIONS (1)
  - PULMONARY EMBOLISM [None]
